FAERS Safety Report 6331646-1 (Version None)
Quarter: 2009Q3

REPORT INFORMATION
  Report Type: 
  Country: None (occurrence: None)
  Receive Date: 20090827
  Receipt Date: 20090825
  Transmission Date: 20100115
  Serious: Yes (Life-Threatening)
  Sender: FDA-Public Use
  Company Number: PHHY2009BR35948

PATIENT
  Sex: Male

DRUGS (6)
  1. DIOVAN AMLO FIX [Suspect]
     Dosage: 320/10 MG
  2. BISOPROLOL FUMARATE [Concomitant]
     Dosage: 10 MG, UNK
  3. MAREVAN [Concomitant]
     Dosage: 5 MG, UNK
  4. CARVEDILOL [Concomitant]
     Dosage: 12.5 UNK, UNK
  5. AAS [Concomitant]
     Dosage: 100 MG, UNK
  6. CONXIFINA [Concomitant]

REACTIONS (3)
  - CARDIAC FAILURE [None]
  - PNEUMONIA [None]
  - RENAL FAILURE [None]
